FAERS Safety Report 8251383-6 (Version None)
Quarter: 2012Q2

REPORT INFORMATION
  Report Type: 
  Country: None (occurrence: None)
  Receive Date: 20120402
  Receipt Date: 20120327
  Transmission Date: 20120825
  Serious: Yes (Other)
  Sender: FDA-Public Use
  Company Number: JP-PFIZER INC-2012048843

PATIENT
  Age: 58 Year
  Sex: Male

DRUGS (11)
  1. LYRICA [Suspect]
     Dosage: 300 MG/DAY
     Route: 048
     Dates: end: 20111227
  2. EPLERENONE [Suspect]
     Indication: CARDIAC HYPERTROPHY
     Dosage: UNK
     Route: 048
  3. ASPIRIN [Concomitant]
  4. PREDNISOLONE [Suspect]
     Dosage: UNK
  5. RHEUMATREX [Suspect]
     Dosage: 8 MG/DAY
     Route: 048
     Dates: start: 20020805
  6. MINZAIN [Concomitant]
  7. DIAZEPAM [Concomitant]
  8. LANSOPRAZOLE [Concomitant]
  9. LYRICA [Suspect]
     Indication: TOOTHACHE
     Dosage: 150 MG/DAY
     Route: 048
     Dates: start: 20111111
  10. RHEUMATREX [Suspect]
     Dosage: 6 MG/DAY
     Route: 048
     Dates: start: 19990807
  11. RHEUMATREX [Suspect]
     Dosage: 6 MG/DAY
     Route: 048
     Dates: start: 20111227

REACTIONS (2)
  - ANAEMIA MACROCYTIC [None]
  - CARDIAC HYPERTROPHY [None]
